FAERS Safety Report 25434319 (Version 1)
Quarter: 2025Q2

REPORT INFORMATION
  Report Type: Spontaneous
  Country: US (occurrence: US)
  Receive Date: 20250613
  Receipt Date: 20250613
  Transmission Date: 20250717
  Serious: No
  Sender: MAYNE
  Company Number: US-MAYNE PHARMA-2025MYN000108

PATIENT

DRUGS (2)
  1. IMVEXXY [Suspect]
     Active Substance: ESTRADIOL
     Indication: Vulvovaginal dryness
     Route: 067
     Dates: start: 20250131
  2. IMVEXXY [Suspect]
     Active Substance: ESTRADIOL
     Indication: Menopause

REACTIONS (4)
  - Vulvovaginal pain [Unknown]
  - Product use complaint [Unknown]
  - Expulsion of medication [Unknown]
  - Wrong technique in product usage process [Unknown]

NARRATIVE: CASE EVENT DATE: 20250101
